FAERS Safety Report 12565648 (Version 6)
Quarter: 2016Q4

REPORT INFORMATION
  Report Type: Spontaneous
  Country: CZ (occurrence: CZ)
  Receive Date: 20160718
  Receipt Date: 20161025
  Transmission Date: 20170207
  Serious: Yes (Hospitalization, Other)
  Sender: FDA-Public Use
  Company Number: CZ-TAKEDA-2016MPI005897

PATIENT
  Age: 71 Year
  Sex: Female
  Weight: 41 kg

DRUGS (27)
  1. LETROX [Concomitant]
     Active Substance: LEVOTHYROXINE SODIUM
     Indication: HYPOTHYROIDISM
     Dosage: 50 MG, QD
     Route: 048
     Dates: start: 2006
  2. ZOFRAN [Concomitant]
     Active Substance: ONDANSETRON HYDROCHLORIDE
     Dosage: 4 MG, BID
     Route: 048
     Dates: start: 20160613
  3. FAYTON [Concomitant]
     Indication: PROPHYLAXIS
     Dosage: 4 MG, MONTHLY
     Route: 042
     Dates: start: 20160530
  4. AMLODIPINE [Concomitant]
     Active Substance: AMLODIPINE BESYLATE
     Dosage: 5 MG, QD
     Route: 065
  5. MILURIT [Concomitant]
     Active Substance: ALLOPURINOL
     Dosage: UNK, QD
     Route: 065
  6. VELCADE [Suspect]
     Active Substance: BORTEZOMIB
     Indication: PLASMA CELL MYELOMA
     Dosage: 1.9 MG, UNK
     Route: 058
     Dates: start: 20160509
  7. MELPHALAN [Suspect]
     Active Substance: MELPHALAN
     Indication: PLASMA CELL MYELOMA
     Dosage: 8 MG, UNK
     Route: 048
     Dates: start: 20160509
  8. DUROGESIC [Concomitant]
     Active Substance: FENTANYL
     Indication: BACK PAIN
     Dosage: 50 ?G, UNK
     Route: 048
     Dates: start: 201603
  9. ZOFRAN [Concomitant]
     Active Substance: ONDANSETRON HYDROCHLORIDE
     Indication: ANTIEMETIC SUPPORTIVE CARE
     Dosage: 4 MG, UNK
     Route: 048
     Dates: start: 20160509, end: 20160612
  10. PREDNISONE. [Suspect]
     Active Substance: PREDNISONE
     Indication: PLASMA CELL MYELOMA
     Dosage: 90 MG, UNK
     Route: 048
     Dates: start: 20160510
  11. IMODIUM [Concomitant]
     Active Substance: LOPERAMIDE HYDROCHLORIDE
     Indication: DIARRHOEA
     Dosage: 2 MG, BID
     Route: 048
     Dates: start: 20160613
  12. IMODIUM [Concomitant]
     Active Substance: LOPERAMIDE HYDROCHLORIDE
     Dosage: UNK
     Route: 065
  13. ZOFRAN [Concomitant]
     Active Substance: ONDANSETRON HYDROCHLORIDE
     Indication: VOMITING
     Dosage: 4 MG, BID
     Route: 048
     Dates: start: 20160509, end: 20160612
  14. VALTREX [Concomitant]
     Active Substance: VALACYCLOVIR HYDROCHLORIDE
     Indication: ANTIVIRAL PROPHYLAXIS
     Dosage: 500 MG, UNK
     Route: 048
     Dates: start: 20160509
  15. DARATUMUMAB [Suspect]
     Active Substance: DARATUMUMAB
     Indication: PLASMA CELL MYELOMA
     Dosage: 752 MG, UNK
     Route: 042
     Dates: start: 20160509
  16. MELPHALAN [Suspect]
     Active Substance: MELPHALAN
     Dosage: UNK
     Route: 048
     Dates: start: 20160707
  17. LOKREN [Concomitant]
     Active Substance: BETAXOLOL HYDROCHLORIDE
     Indication: HYPERTENSION
     Dosage: 10 MG, QD
     Route: 048
     Dates: start: 2013
  18. VIGANTOL                           /00318501/ [Concomitant]
     Active Substance: CHOLECALCIFEROL
     Indication: OSTEOPOROSIS
     Dosage: UNK, 1/WEEK
     Route: 048
     Dates: start: 2016
  19. PREDNISONE. [Suspect]
     Active Substance: PREDNISONE
     Dosage: UNK
     Route: 048
     Dates: start: 20160707
  20. OXYCODON [Concomitant]
     Active Substance: OXYCODONE
     Indication: BACK PAIN
     Dosage: 10 MG, UNK
     Route: 048
     Dates: start: 20160428
  21. ZOFRAN [Concomitant]
     Active Substance: ONDANSETRON HYDROCHLORIDE
     Dosage: 4 MG, BID
     Route: 048
     Dates: start: 20160613
  22. DARATUMUMAB [Suspect]
     Active Substance: DARATUMUMAB
     Dosage: UNK
     Route: 042
     Dates: start: 20160707
  23. CALCICHEW [Concomitant]
     Active Substance: CALCIUM CARBONATE
     Indication: OSTEOPOROSIS
     Dosage: 500 MG, QD
     Route: 048
     Dates: start: 201511
  24. ZOFRAN [Concomitant]
     Active Substance: ONDANSETRON HYDROCHLORIDE
     Indication: NAUSEA
     Dosage: 4 MG, UNK
     Route: 048
     Dates: start: 20160509, end: 20160612
  25. ZOFRAN [Concomitant]
     Active Substance: ONDANSETRON HYDROCHLORIDE
     Dosage: 4 MG, BID
     Route: 048
     Dates: start: 20160613
  26. VELCADE [Suspect]
     Active Substance: BORTEZOMIB
     Dosage: UNK
     Route: 058
     Dates: start: 20160707
  27. LUNALDIN [Concomitant]
     Indication: BACK PAIN
     Dosage: 200 MG, UNK
     Route: 048
     Dates: start: 20160516

REACTIONS (2)
  - Clostridium colitis [Recovered/Resolved]
  - Atrial fibrillation [Recovered/Resolved]

NARRATIVE: CASE EVENT DATE: 20160616
